FAERS Safety Report 9502827 (Version 2)
Quarter: 2013Q3

REPORT INFORMATION
  Report Type: Spontaneous
  Country: US (occurrence: US)
  Receive Date: 20130906
  Receipt Date: 20130906
  Transmission Date: 20140515
  Serious: Yes (Congenital Anomaly)
  Sender: FDA-Public Use
  Company Number: US-JNJFOC-JAUSA20911

PATIENT
  Sex: Male

DRUGS (1)
  1. VERMOX [Suspect]
     Indication: INFECTION
     Route: 064
     Dates: start: 19820616, end: 19820616

REACTIONS (2)
  - Hypospadias [Not Recovered/Not Resolved]
  - Foetal exposure during pregnancy [Recovered/Resolved]
